FAERS Safety Report 13215256 (Version 4)
Quarter: 2017Q1

REPORT INFORMATION
  Report Type: Spontaneous
  Country: US (occurrence: US)
  Receive Date: 20170209
  Receipt Date: 20170316
  Transmission Date: 20170428
  Serious: Yes (Hospitalization)
  Sender: FDA-Public Use
  Company Number: US-BAUSCH-BL-2017-002778

PATIENT
  Sex: Female
  Weight: 70.37 kg

DRUGS (2)
  1. CUPRIMINE [Suspect]
     Active Substance: PENICILLAMINE
     Indication: PRODUCT USED FOR UNKNOWN INDICATION
     Route: 048
     Dates: start: 20160415
  2. CUPRIMINE [Suspect]
     Active Substance: PENICILLAMINE
     Route: 048
     Dates: start: 20170127

REACTIONS (2)
  - Drug dose omission [Unknown]
  - Hospitalisation [Unknown]
